FAERS Safety Report 4661260-5 (Version None)
Quarter: 2005Q2

REPORT INFORMATION
  Report Type: 
  Country: None (occurrence: None)
  Receive Date: 20050511
  Receipt Date: 20050426
  Transmission Date: 20051028
  Serious: Yes (Other)
  Sender: FDA-Public Use
  Company Number: GB-2005-006322

PATIENT

DRUGS (1)
  1. BETASERON [Suspect]

REACTIONS (3)
  - ABNORMAL CLOTTING FACTOR [None]
  - CONTUSION [None]
  - EPISTAXIS [None]
